FAERS Safety Report 16252154 (Version 2)
Quarter: 2019Q2

REPORT INFORMATION
  Report Type: Spontaneous
  Country: BR (occurrence: BR)
  Receive Date: 20190429
  Receipt Date: 20190516
  Transmission Date: 20190711
  Serious: Yes (Other)
  Sender: FDA-Public Use
  Company Number: BR-PFIZER INC-2019176697

PATIENT
  Age: 49 Year
  Sex: Male
  Weight: 84 kg

DRUGS (6)
  1. ELIFORE [Suspect]
     Active Substance: DESVENLAFAXINE SUCCINATE
     Indication: ANXIETY
     Dosage: ONE TABLET OF 50MG ONCE A DAY FOR ONE WEEK
  2. CABERGOLINE. [Concomitant]
     Active Substance: CABERGOLINE
     Dosage: UNK
     Dates: start: 201803
  3. ELIFORE [Suspect]
     Active Substance: DESVENLAFAXINE SUCCINATE
     Dosage: ONE TABLET OF 100MG ONCE A DAY
     Dates: end: 201904
  4. ELIFORE [Suspect]
     Active Substance: DESVENLAFAXINE SUCCINATE
     Dosage: HALF OF A TABLET OF 50MG ONCE A DAY ON THE FIRST THREE DAYS
     Dates: start: 20190501, end: 20190503
  5. ELIFORE [Suspect]
     Active Substance: DESVENLAFAXINE SUCCINATE
     Indication: DEPRESSION
     Dosage: HALF OF A TABLET OF 50MG ONCE A DAY FOR TWO OR THREE DAYS
     Dates: start: 201903
  6. ELIFORE [Suspect]
     Active Substance: DESVENLAFAXINE SUCCINATE
     Dosage: ONE TABLET OF 50MG ONCE A DAY
     Dates: start: 20190504

REACTIONS (7)
  - Epistaxis [Recovered/Resolved]
  - Dengue haemorrhagic fever [Recovered/Resolved]
  - Off label use [Recovered/Resolved]
  - Wrong technique in product usage process [Recovered/Resolved]
  - Rectal haemorrhage [Recovered/Resolved]
  - Dizziness [Recovered/Resolved]
  - Hyperhidrosis [Not Recovered/Not Resolved]

NARRATIVE: CASE EVENT DATE: 2019
